FAERS Safety Report 21126097 (Version 1)
Quarter: 2022Q3

REPORT INFORMATION
  Report Type: Spontaneous
  Country: US (occurrence: None)
  Receive Date: 20220723
  Receipt Date: 20220723
  Transmission Date: 20221026
  Serious: Yes (Disabling)
  Sender: FDA-Public Use
  Company Number: None

PATIENT
  Age: 73 Year
  Sex: Male
  Weight: 83.25 kg

DRUGS (14)
  1. MAGNESIUM CITRATE LEMON [Suspect]
     Active Substance: MAGNESIUM CITRATE
     Indication: Colonoscopy
     Dosage: OTHER STRENGTH : OUNCE;?OTHER QUANTITY : 10 OUNCE(S);?OTHER FREQUENCY : ONCE;?
     Route: 048
     Dates: start: 20210616, end: 20210616
  2. ALLERGY VACCINE [Concomitant]
  3. EZETIMIBE [Concomitant]
     Active Substance: EZETIMIBE
  4. FAMOTIDINE [Concomitant]
     Active Substance: FAMOTIDINE
  5. FLUTICASONE [Concomitant]
     Active Substance: FLUTICASONE
  6. FUJROSIMIDE [Concomitant]
  7. K-TAB [Concomitant]
     Active Substance: POTASSIUM CHLORIDE
  8. K-TAB ER [Concomitant]
  9. COENZYME Q10 [Concomitant]
     Active Substance: DIETARY SUPPLEMENT\UBIDECARENONE
  10. MAGNESIUM [Concomitant]
     Active Substance: MAGNESIUM
  11. NICOTINIMIDE RIBOSIDE [Concomitant]
  12. OMEGA-3 ACIDS [Concomitant]
     Active Substance: OMEGA-3 FATTY ACIDS
  13. MVM [Concomitant]
  14. VITAMIN D3 [Concomitant]
     Active Substance: CHOLECALCIFEROL

REACTIONS (7)
  - Abdominal pain [None]
  - Flatulence [None]
  - Abdominal distension [None]
  - Oedema [None]
  - Secretion discharge [None]
  - Abdominal discomfort [None]
  - Gastrointestinal sounds abnormal [None]

NARRATIVE: CASE EVENT DATE: 20210616
